FAERS Safety Report 8555031-7 (Version None)
Quarter: 2012Q3

REPORT INFORMATION
  Report Type: 
  Country: None (occurrence: None)
  Receive Date: 20120731
  Receipt Date: 20120727
  Transmission Date: 20120928
  Serious: Yes (Death, Hospitalization)
  Sender: FDA-Public Use
  Company Number: US-B.I. PHARMACEUTICALS,INC./RIDGEFIELD-2012-BP-15479BP

PATIENT
  Age: 78 Year
  Sex: Female
  Weight: 64 kg

DRUGS (14)
  1. COLCHICINE [Concomitant]
  2. ZOLOFT [Concomitant]
  3. PRADAXA [Suspect]
     Indication: ATRIAL FIBRILLATION
     Dosage: 150 MG
     Dates: start: 20120201, end: 20120527
  4. COREG [Concomitant]
     Indication: CARDIAC FAILURE
  5. HALDOL [Concomitant]
  6. ALLOPURINOL [Concomitant]
  7. LISINOPRIL [Concomitant]
     Indication: HYPERTENSION
  8. CLONIDINE [Concomitant]
     Indication: HYPERTENSION
  9. ISOSORBIDE [Concomitant]
  10. SERTRALINE HYDROCHLORIDE [Concomitant]
  11. COREG [Concomitant]
     Indication: HYPERTENSION
  12. IMDUR [Concomitant]
  13. LISINOPRIL [Concomitant]
     Indication: CARDIAC FAILURE CONGESTIVE
  14. DILTIAZEM [Concomitant]

REACTIONS (13)
  - BLOOD GLUCOSE DECREASED [None]
  - VIITH NERVE PARALYSIS [None]
  - HYPOTENSION [None]
  - DYSPHAGIA [None]
  - RENAL FAILURE [None]
  - SEPSIS [None]
  - BACTERAEMIA [None]
  - INTERNATIONAL NORMALISED RATIO INCREASED [None]
  - DYSARTHRIA [None]
  - FAILURE TO THRIVE [None]
  - CORONARY ARTERY DISEASE [None]
  - CARDIO-RESPIRATORY ARREST [None]
  - MENTAL STATUS CHANGES [None]
